FAERS Safety Report 14561740 (Version 1)
Quarter: 2018Q1

REPORT INFORMATION
  Report Type: Spontaneous
  Country: US (occurrence: US)
  Receive Date: 20180222
  Receipt Date: 20180222
  Transmission Date: 20180509
  Serious: No
  Sender: FDA-Public Use
  Company Number: US-TEVA-2018-US-860199

PATIENT
  Age: 66 Year
  Sex: Female

DRUGS (3)
  1. XANAX XR [Suspect]
     Active Substance: ALPRAZOLAM
     Indication: STRESS
     Dosage: AS NEEDED
     Route: 065
  2. XANAX XR [Suspect]
     Active Substance: ALPRAZOLAM
     Indication: PANIC DISORDER
  3. ALPRAZOLAM. [Suspect]
     Active Substance: ALPRAZOLAM
     Route: 065

REACTIONS (4)
  - Panic attack [Unknown]
  - Mood swings [Unknown]
  - Feeling abnormal [Unknown]
  - Panic disorder [Unknown]

NARRATIVE: CASE EVENT DATE: 201801
